FAERS Safety Report 7611832-0 (Version None)
Quarter: 2011Q3

REPORT INFORMATION
  Report Type: 
  Country: None (occurrence: None)
  Receive Date: 20110715
  Receipt Date: 20110708
  Transmission Date: 20111222
  Serious: Yes (Other)
  Sender: FDA-Public Use
  Company Number: CA-PFIZER INC-2011133728

PATIENT
  Age: 66 Year
  Sex: Female

DRUGS (3)
  1. GINKO BILOBA [Concomitant]
     Indication: RAYNAUD'S PHENOMENON
     Dosage: 400 MG, 1X/DAY
  2. GINKO BILOBA [Concomitant]
     Dosage: 340 MG IN AM, 60MG IN PM
  3. XALATAN [Suspect]
     Indication: NORMAL TENSION GLAUCOMA
     Dosage: 1 GTT, 1X/DAY AT BEDTIME
     Route: 047

REACTIONS (5)
  - BLOOD PRESSURE DECREASED [None]
  - INTRAOCULAR PRESSURE INCREASED [None]
  - ERYTHEMA OF EYELID [None]
  - OCULAR VASCULAR DISORDER [None]
  - CHEST PAIN [None]
